FAERS Safety Report 14900235 (Version 2)
Quarter: 2018Q2

REPORT INFORMATION
  Report Type: Spontaneous
  Country: ES (occurrence: ES)
  Receive Date: 20180516
  Receipt Date: 20180525
  Transmission Date: 20180711
  Serious: Yes (Life-Threatening, Hospitalization, Other)
  Sender: FDA-Public Use
  Company Number: ES-ACCORD-066945

PATIENT
  Sex: Female

DRUGS (15)
  1. ERIBULIN [Concomitant]
     Active Substance: ERIBULIN
     Indication: INVASIVE DUCTAL BREAST CARCINOMA
     Dosage: ON DAYS 1 AND 8 EVERY 21 DAYS
     Dates: start: 201402, end: 201412
  2. DOCETAXEL. [Suspect]
     Active Substance: DOCETAXEL
     Indication: BREAST CANCER METASTATIC
     Dates: start: 2012
  3. IBUPROFEN. [Concomitant]
     Active Substance: IBUPROFEN
     Dosage: AS NEEDED
  4. LETROZOLE. [Concomitant]
     Active Substance: LETROZOLE
     Indication: HORMONE THERAPY
     Dates: start: 201308, end: 201312
  5. CYCLOPHOSPHAMIDE/CYCLOPHOSPHAMIDE MONOHYDRATE [Suspect]
     Active Substance: CYCLOPHOSPHAMIDE
     Indication: BREAST CANCER METASTATIC
     Dates: start: 2012
  6. OMEPRAZOLE. [Concomitant]
     Active Substance: OMEPRAZOLE
  7. SILDENAFIL. [Concomitant]
     Active Substance: SILDENAFIL
  8. TAMOXIFEN [Concomitant]
     Active Substance: TAMOXIFEN
     Indication: BREAST CANCER METASTATIC
     Dates: start: 2012, end: 201308
  9. CAPECITABINE. [Suspect]
     Active Substance: CAPECITABINE
     Indication: INVASIVE DUCTAL BREAST CARCINOMA
     Dosage: EVERY 12 H FOR DAYS 1-14 EVERY 21 DAYS.
     Route: 048
     Dates: start: 201402, end: 2014
  10. EVEROLIMUS. [Suspect]
     Active Substance: EVEROLIMUS
     Indication: HORMONE THERAPY
     Dates: start: 201509, end: 201602
  11. EXEMESTANE. [Suspect]
     Active Substance: EXEMESTANE
     Indication: HORMONE THERAPY
     Dates: start: 201509
  12. BOSENTAN. [Concomitant]
     Active Substance: BOSENTAN
  13. ZOLEDRONIC ACID [Suspect]
     Active Substance: ZOLEDRONIC ACID
     Indication: INVASIVE DUCTAL BREAST CARCINOMA
     Dates: start: 2012, end: 201307
  14. PARACETAMOL/TRAMADOL HYDROCHLORIDE [Concomitant]
     Active Substance: ACETAMINOPHEN\TRAMADOL HYDROCHLORIDE
     Dosage: AS NEEDED
  15. GOSERELIN/GOSERELIN ACETATE [Concomitant]
     Active Substance: GOSERELIN
     Indication: HORMONE THERAPY
     Dates: start: 201308, end: 201312

REACTIONS (13)
  - Vomiting [Unknown]
  - Pneumonitis [Unknown]
  - Epistaxis [Unknown]
  - Nausea [Unknown]
  - Tooth infection [Unknown]
  - Enteritis [Unknown]
  - Anaemia [Not Recovered/Not Resolved]
  - Febrile neutropenia [Unknown]
  - Palmar-plantar erythrodysaesthesia syndrome [Unknown]
  - Off label use [Unknown]
  - Amenorrhoea [Unknown]
  - Haemorrhage [Unknown]
  - Mucosal inflammation [Unknown]

NARRATIVE: CASE EVENT DATE: 2012
